FAERS Safety Report 11473917 (Version 1)
Quarter: 2015Q3

REPORT INFORMATION
  Report Type: Spontaneous
  Country: US (occurrence: None)
  Receive Date: 20150902
  Receipt Date: 20150902
  Transmission Date: 20151125
  Serious: Yes (Hospitalization)
  Sender: FDA-Public Use
  Company Number: A-NJ2015-113459

PATIENT
  Age: 41 Year
  Sex: Female

DRUGS (3)
  1. LETAIRIS [Concomitant]
     Active Substance: AMBRISENTAN
  2. ADCIRCA [Concomitant]
     Active Substance: TADALAFIL
  3. VELETRI [Suspect]
     Active Substance: EPOPROSTENOL
     Indication: PULMONARY HYPERTENSION
     Dosage: 15 NG/KG, PER MIN, ORAL
     Route: 048
     Dates: start: 20130906

REACTIONS (6)
  - Blood culture positive [None]
  - Catheter site pain [None]
  - Device related infection [None]
  - Catheter placement [None]
  - Catheter removal [None]
  - Staphylococcal infection [None]

NARRATIVE: CASE EVENT DATE: 20150218
